FAERS Safety Report 23050401 (Version 3)
Quarter: 2023Q4

REPORT INFORMATION
  Report Type: Report from Study
  Country: CN (occurrence: CN)
  Receive Date: 20231010
  Receipt Date: 20231102
  Transmission Date: 20240110
  Serious: Yes (Death, Life-Threatening, Hospitalization)
  Sender: FDA-Public Use
  Company Number: CN-SCYNEXIS, INC.-2023SCY000069

PATIENT
  Age: 63 Year
  Sex: Female
  Weight: 50 kg

DRUGS (12)
  1. FLUCONAZOLE [Suspect]
     Active Substance: FLUCONAZOLE
     Indication: Systemic candida
     Dosage: 750 MILLIGRAM, BID (IBREXAFUNGERP OR PLACEBO, LOADING DOSE)
     Route: 048
     Dates: start: 20230904, end: 20230905
  2. IBREXAFUNGERP [Suspect]
     Active Substance: IBREXAFUNGERP
     Indication: Systemic candida
     Dosage: 750 MILLIGRAM, BID (IBREXAFUNGERP OR PLACEBO, LOADING DOSE)
     Route: 048
     Dates: start: 20230904, end: 20230905
  3. PLACEBO [Suspect]
     Active Substance: UNSPECIFIED INGREDIENT
     Indication: Systemic candida
     Dosage: 750 MILLIGRAM, BID (IBREXAFUNGERP OR PLACEBO, LOADING DOSE)
     Route: 048
     Dates: start: 20230904, end: 20230905
  4. PLACEBO [Suspect]
     Active Substance: UNSPECIFIED INGREDIENT
     Indication: Systemic candida
     Dosage: 750 MILLIGRAM, BID (IBREXAFUNGERP OR PLACEBO, LOADING DOSE)
     Route: 048
     Dates: start: 20230904, end: 20230905
  5. FLUCONAZOLE [Suspect]
     Active Substance: FLUCONAZOLE
     Indication: Systemic candida
     Dosage: 750 MILLIGRAM, QD (IBREXAFUNGERP OR PLACEBO, MAINTENANCE DOSE)
     Route: 048
     Dates: start: 20230906, end: 20230920
  6. IBREXAFUNGERP [Suspect]
     Active Substance: IBREXAFUNGERP
     Indication: Systemic candida
     Dosage: 750 MILLIGRAM, QD (IBREXAFUNGERP OR PLACEBO, MAINTENANCE DOSE)
     Route: 048
     Dates: start: 20230906, end: 20230920
  7. PLACEBO [Suspect]
     Active Substance: UNSPECIFIED INGREDIENT
     Indication: Systemic candida
     Dosage: 750 MILLIGRAM, QD (IBREXAFUNGERP OR PLACEBO, MAINTENANCE DOSE)
     Route: 048
     Dates: start: 20230906, end: 20230920
  8. PLACEBO [Suspect]
     Active Substance: UNSPECIFIED INGREDIENT
     Indication: Systemic candida
     Dosage: 750 MILLIGRAM, QD (IBREXAFUNGERP OR PLACEBO, MAINTENANCE DOSE)
     Route: 048
     Dates: start: 20230906, end: 20230920
  9. CASPOFUNGIN [Suspect]
     Active Substance: CASPOFUNGIN
     Indication: Systemic candida
     Dosage: 70 MILLIGRAM, SINGLE (GREATER THAN 1 HOUR ONCE A DAY)
     Route: 042
     Dates: start: 20230831, end: 20230831
  10. CASPOFUNGIN [Suspect]
     Active Substance: CASPOFUNGIN
     Indication: Systemic candida
     Dosage: 50 MILLIGRAM, QD (GREATER THAN 1 HOUR ONCE A DAY)
     Route: 042
     Dates: start: 20230901, end: 20230904
  11. Enteral nutrition powder [Concomitant]
     Indication: Nutritional supplementation
     Dosage: 400 GRAM, QID
     Route: 048
     Dates: start: 20230908, end: 20230919
  12. FAT EMULSION NOS [Concomitant]
     Active Substance: EGG PHOSPHOLIPIDS\SAFFLOWER OIL\SOYBEAN OIL
     Indication: Nutritional supplementation
     Dosage: 400 MILLILITER, UNKNOWN
     Route: 042
     Dates: start: 20230819, end: 20230919

REACTIONS (1)
  - Acute kidney injury [Fatal]

NARRATIVE: CASE EVENT DATE: 20230920
